FAERS Safety Report 25175433 (Version 1)
Quarter: 2025Q2

REPORT INFORMATION
  Report Type: Report from Study
  Country: DE (occurrence: DE)
  Receive Date: 20250408
  Receipt Date: 20250408
  Transmission Date: 20250717
  Serious: Yes (Hospitalization, Other)
  Sender: ABBVIE
  Company Number: DE-ABBVIE-6205212

PATIENT
  Age: 86 Year
  Sex: Female

DRUGS (18)
  1. FOSCARBIDOPA\FOSLEVODOPA [Suspect]
     Active Substance: FOSCARBIDOPA\FOSLEVODOPA
     Indication: Product used for unknown indication
     Route: 058
  2. FOSCARBIDOPA\FOSLEVODOPA [Suspect]
     Active Substance: FOSCARBIDOPA\FOSLEVODOPA
     Route: 058
     Dates: start: 2024
  3. POLYETHYLENE GLYCOL 3350\POTASSIUM CHLORIDE\SODIUM BICARBONATE\SODIUM [Concomitant]
     Active Substance: POLYETHYLENE GLYCOL 3350\POTASSIUM CHLORIDE\SODIUM BICARBONATE\SODIUM CHLORIDE
     Indication: Constipation
  4. METAMIZOLE [Concomitant]
     Active Substance: METAMIZOLE
     Indication: Pain
  5. Kamistad [Concomitant]
     Indication: Gingival pain
  6. Toresamid 1 A Pharma [Concomitant]
     Indication: Product used for unknown indication
  7. RIVOTRIL [Concomitant]
     Active Substance: CLONAZEPAM
     Indication: Product used for unknown indication
  8. POLYETHYLENE GLYCOL 3350\POTASSIUM CHLORIDE\SODIUM BICARBONATE\SODIUM [Concomitant]
     Active Substance: POLYETHYLENE GLYCOL 3350\POTASSIUM CHLORIDE\SODIUM BICARBONATE\SODIUM CHLORIDE
     Indication: Constipation
  9. ATORVASTATIN [Concomitant]
     Active Substance: ATORVASTATIN
     Indication: Product used for unknown indication
  10. LEVOTHYROXINE SODIUM [Concomitant]
     Active Substance: LEVOTHYROXINE SODIUM
     Indication: Product used for unknown indication
  11. CARBIDOPA\LEVODOPA [Concomitant]
     Active Substance: CARBIDOPA\LEVODOPA
     Indication: Product used for unknown indication
  12. ELIQUIS [Concomitant]
     Active Substance: APIXABAN
     Indication: Product used for unknown indication
  13. QUETIAPINE [Concomitant]
     Active Substance: QUETIAPINE
     Indication: Restlessness
  14. LEVOTHYROXINE SODIUM [Concomitant]
     Active Substance: LEVOTHYROXINE SODIUM
     Indication: Product used for unknown indication
  15. METOPROLOL SUCCINATE [Concomitant]
     Active Substance: METOPROLOL SUCCINATE
     Indication: Product used for unknown indication
  16. ATORVASTATIN [Concomitant]
     Active Substance: ATORVASTATIN
     Indication: Product used for unknown indication
  17. CANDESARTAN CILEXETIL [Concomitant]
     Active Substance: CANDESARTAN CILEXETIL
     Indication: Product used for unknown indication
  18. Chamomile flowers [Concomitant]
     Indication: Product used for unknown indication

REACTIONS (36)
  - Fall [Unknown]
  - Electrocardiogram QT shortened [Unknown]
  - Procalcitonin increased [Unknown]
  - Dyspnoea [Unknown]
  - Dry skin [Unknown]
  - Skin laceration [Unknown]
  - Restlessness [Unknown]
  - Somnolence [Unknown]
  - Dry skin [Unknown]
  - Device issue [Unknown]
  - Puncture site erythema [Unknown]
  - Device leakage [Unknown]
  - Dementia [Unknown]
  - Hallucination [Unknown]
  - General physical health deterioration [Unknown]
  - Malnutrition [Unknown]
  - Oedema peripheral [Unknown]
  - Aortic arteriosclerosis [Unknown]
  - Gait disturbance [Unknown]
  - Parkinsonian gait [Unknown]
  - Freezing phenomenon [Unknown]
  - Balance disorder [Unknown]
  - Movement disorder [Unknown]
  - Atrial fibrillation [Unknown]
  - Agitation [Unknown]
  - Electrocardiogram QT prolonged [Unknown]
  - Bundle branch block left [Unknown]
  - Pulmonary hypertension [Unknown]
  - C-reactive protein increased [Unknown]
  - N-terminal prohormone brain natriuretic peptide increased [Unknown]
  - Tricuspid valve incompetence [Unknown]
  - Mitral valve incompetence [Unknown]
  - Normochromic anaemia [Unknown]
  - Depressed mood [Unknown]
  - Psychomotor hyperactivity [Unknown]
  - Hallucination [Recovered/Resolved]

NARRATIVE: CASE EVENT DATE: 20240213
